FAERS Safety Report 8135464-3 (Version None)
Quarter: 2012Q1

REPORT INFORMATION
  Report Type: 
  Country: None (occurrence: None)
  Receive Date: 20120214
  Receipt Date: 20120208
  Transmission Date: 20120608
  Serious: Yes (Life-Threatening, Hospitalization)
  Sender: FDA-Public Use
  Company Number: DE-BAYER-2012-010347

PATIENT
  Sex: Female

DRUGS (3)
  1. ACETYLSALICYLIC ACID SRT [Suspect]
     Indication: SUICIDAL IDEATION
     Dosage: CONSUMER TOOK UP TO 48G AT 8AM
  2. IBUPROFEN [Suspect]
     Indication: SUICIDAL IDEATION
     Dosage: CONSUMER TOOK 4G AT 8AM
  3. ACETAMINOPHEN [Suspect]
     Dosage: CONSUMER TOOK 5G AT 8AM

REACTIONS (3)
  - NAUSEA [None]
  - TOXICITY TO VARIOUS AGENTS [None]
  - ABDOMINAL PAIN UPPER [None]
